FAERS Safety Report 5649875-9 (Version None)
Quarter: 2008Q1

REPORT INFORMATION
  Report Type: 
  Country: None (occurrence: None)
  Receive Date: 20080222
  Receipt Date: 20080219
  Transmission Date: 20080703
  Serious: Yes (Death, Hospitalization)
  Sender: FDA-Public Use
  Company Number: 200712098

PATIENT
  Age: 73 Year
  Sex: Female
  Weight: 53 kg

DRUGS (9)
  1. CARIMUNE NF [Suspect]
     Indication: ANAEMIA HAEMOLYTIC AUTOIMMUNE
     Dosage: 42 G QD IV
     Route: 042
     Dates: start: 20070625, end: 20070626
  2. PROTONIX [Concomitant]
  3. INSULIN (LISPRO) [Concomitant]
  4. INSULIN (GLARGINE) [Concomitant]
  5. COREG [Concomitant]
  6. LOSARTAN POTASSIUM [Concomitant]
  7. NORVASC [Concomitant]
  8. SYNTHROID [Concomitant]
  9. AVANDIA [Concomitant]

REACTIONS (6)
  - CARDIO-RESPIRATORY ARREST [None]
  - DRUG ADMINISTRATION ERROR [None]
  - OLIGURIA [None]
  - RENAL FAILURE [None]
  - RESPIRATORY FAILURE [None]
  - SEPSIS [None]
